FAERS Safety Report 4474788-8 (Version None)
Quarter: 2004Q4

REPORT INFORMATION
  Report Type: 
  Country: None (occurrence: None)
  Receive Date: 20041012
  Receipt Date: 20040930
  Transmission Date: 20050328
  Serious: Yes (Hospitalization, Other)
  Sender: FDA-Public Use
  Company Number: STA-AE-04-MTX-463

PATIENT
  Age: 65 Year
  Sex: Female

DRUGS (12)
  1. METHOTREXATE [Suspect]
     Indication: RHEUMATOID ARTHRITIS
     Dosage: 7.5 MG 1X PER 1 WK, ORAL
     Route: 048
     Dates: start: 20030520, end: 20031101
  2. METHOTREXATE [Suspect]
     Indication: RHEUMATOID ARTHRITIS
     Dosage: 20 MG 1X PER 1WK, ORAL
     Route: 048
     Dates: start: 20031101, end: 20040301
  3. METHOTREXATE [Suspect]
     Indication: RHEUMATOID ARTHRITIS
     Dosage: ORAL
     Route: 048
     Dates: start: 20040301, end: 20040411
  4. ARAVA [Suspect]
     Indication: RHEUMATOID ARTHRITIS
     Dosage: 20 MG 1X PER 1 DAY, ORAL
     Route: 048
     Dates: start: 20021007, end: 20040411
  5. PRAVACHOL [Concomitant]
  6. COZAAR [Concomitant]
  7. FUROSEMIDE [Concomitant]
  8. PREDNISOLONE [Concomitant]
  9. DUPHALAC [Concomitant]
  10. ASPIRIN [Concomitant]
  11. IMDUR [Concomitant]
  12. SELOKEN ZOC (METOPROLOL SUCCINATE) [Concomitant]

REACTIONS (8)
  - CHEST PAIN [None]
  - EPISTAXIS [None]
  - FATIGUE [None]
  - MYALGIA [None]
  - NAUSEA [None]
  - PANCYTOPENIA [None]
  - PYREXIA [None]
  - TRANSAMINASES INCREASED [None]
